FAERS Safety Report 22041206 (Version 1)
Quarter: 2023Q1

REPORT INFORMATION
  Report Type: Spontaneous
  Country: US (occurrence: None)
  Receive Date: 20230224
  Receipt Date: 20230224
  Transmission Date: 20230418
  Serious: No
  Sender: FDA-Public Use
  Company Number: None

PATIENT
  Age: 72 Year
  Sex: Female
  Weight: 106.9 kg

DRUGS (2)
  1. INDOCYANINE GREEN [Suspect]
     Active Substance: INDOCYANINE GREEN
  2. COSMETICS [Suspect]
     Active Substance: COSMETICS

REACTIONS (1)
  - Drug ineffective [None]

NARRATIVE: CASE EVENT DATE: 20230221
